FAERS Safety Report 4836522-9 (Version None)
Quarter: 2005Q4

REPORT INFORMATION
  Report Type: 
  Country: None (occurrence: None)
  Receive Date: 20051118
  Receipt Date: 20051108
  Transmission Date: 20060501
  Serious: Yes (Disabling)
  Sender: FDA-Public Use
  Company Number: 2005154264

PATIENT
  Age: 44 Year
  Sex: Male
  Weight: 77 kg

DRUGS (5)
  1. LYRICA [Suspect]
     Indication: SCIATICA
     Dosage: (1 IN 1 D), ORAL
     Route: 048
     Dates: start: 20050607, end: 20050923
  2. DIPROBASE (EMOLLIENTS AND PROTECTIVES) [Concomitant]
  3. INDOMETHACIN [Concomitant]
  4. HYDROXYZINE [Concomitant]
  5. BETNOVATE (BETAMETHASONE) [Concomitant]

REACTIONS (1)
  - LEUKOCYTOCLASTIC VASCULITIS [None]
